FAERS Safety Report 10194738 (Version 1)
Quarter: 2014Q2

REPORT INFORMATION
  Report Type: Spontaneous
  Country: US (occurrence: US)
  Receive Date: 20140526
  Receipt Date: 20140526
  Transmission Date: 20141212
  Serious: Yes (Death)
  Sender: FDA-Public Use
  Company Number: US-BRISTOL-MYERS SQUIBB COMPANY-20780458

PATIENT
  Sex: Female

DRUGS (4)
  1. BYETTA [Suspect]
     Dosage: APR07-MAY07?JAN10-FEB10
     Dates: start: 200704
  2. BYDUREON [Suspect]
     Dates: start: 201202, end: 201211
  3. JANUVIA [Suspect]
     Dosage: LAST DOSE ON JAN10
     Dates: start: 200909
  4. JANUMET [Suspect]
     Dosage: LAST DOSE ON JAN10
     Dates: start: 200909

REACTIONS (1)
  - Pancreatic carcinoma [Fatal]
